FAERS Safety Report 5730095-4 (Version None)
Quarter: 2008Q2

REPORT INFORMATION
  Report Type: 
  Country: None (occurrence: None)
  Receive Date: 20080507
  Receipt Date: 20080430
  Transmission Date: 20081010
  Serious: Yes (Other)
  Sender: FDA-Public Use
  Company Number: PHRM2008FR01023

PATIENT
  Age: 12 Year
  Sex: Male

DRUGS (3)
  1. RITALIN [Suspect]
     Dosage: 20 MG/DAY
     Route: 048
     Dates: start: 20080107, end: 20080130
  2. RITALIN [Suspect]
     Dosage: 30 MG, QD
     Route: 048
     Dates: start: 20080107, end: 20080216
  3. RITALIN [Suspect]
     Dosage: 30 MG, QD
     Route: 048
     Dates: start: 20080303

REACTIONS (4)
  - EYE PAIN [None]
  - HEMICEPHALALGIA [None]
  - MOUNTAIN SICKNESS ACUTE [None]
  - WITHDRAWAL SYNDROME [None]
